FAERS Safety Report 14204376 (Version 1)
Quarter: 2017Q4

REPORT INFORMATION
  Report Type: Spontaneous
  Country: US (occurrence: US)
  Receive Date: 20171117
  Receipt Date: 20171117
  Transmission Date: 20180321
  Serious: Yes (Life-Threatening, Hospitalization)
  Sender: FDA-Public Use
  Company Number: None

PATIENT
  Age: 48 Year
  Sex: Female
  Weight: 87 kg

DRUGS (3)
  1. TRANSEXAMIC ACID [Suspect]
     Active Substance: TRANEXAMIC ACID
     Indication: POSTOPERATIVE CARE
     Dosage: ?          OTHER FREQUENCY:ONCE;?
     Route: 041
     Dates: start: 20171103, end: 20171103
  2. TRANSEXAMIC ACID [Suspect]
     Active Substance: TRANEXAMIC ACID
     Indication: CORONARY ARTERY BYPASS
     Dosage: ?          OTHER FREQUENCY:ONCE;?
     Route: 041
     Dates: start: 20171103, end: 20171103
  3. TRANSEXAMIC ACID [Suspect]
     Active Substance: TRANEXAMIC ACID
     Indication: DRUG THERAPY
     Dosage: ?          OTHER FREQUENCY:ONCE;?
     Route: 041
     Dates: start: 20171103, end: 20171103

REACTIONS (4)
  - Deep vein thrombosis [None]
  - Post procedural complication [None]
  - Incision site pain [None]
  - Pulmonary embolism [None]

NARRATIVE: CASE EVENT DATE: 20171112
